FAERS Safety Report 25362113 (Version 1)
Quarter: 2025Q2

REPORT INFORMATION
  Report Type: Spontaneous
  Country: CN (occurrence: CN)
  Receive Date: 20250527
  Receipt Date: 20250527
  Transmission Date: 20250716
  Serious: Yes (Other)
  Sender: BAXTER
  Company Number: None

PATIENT
  Age: 48 Year
  Sex: Female
  Weight: 53 kg

DRUGS (13)
  1. CYCLOPHOSPHAMIDE [Suspect]
     Active Substance: CYCLOPHOSPHAMIDE
     Indication: Invasive breast carcinoma
     Dosage: 0.85 G, QD, INJECTION, FOURTH CYCLE CHEMOTHERAPY OF EC REGIMEN
     Route: 041
     Dates: start: 20250510, end: 20250510
  2. SODIUM CHLORIDE [Suspect]
     Active Substance: SODIUM CHLORIDE
     Route: 042
     Dates: start: 20250510
  3. SODIUM CHLORIDE [Suspect]
     Active Substance: SODIUM CHLORIDE
     Route: 042
     Dates: start: 20250510
  4. SODIUM CHLORIDE [Suspect]
     Active Substance: SODIUM CHLORIDE
     Route: 041
     Dates: start: 20250510
  5. EPIRUBICIN [Suspect]
     Active Substance: EPIRUBICIN
     Indication: Invasive breast carcinoma
     Dosage: 140.0000 MG, QD, INJECTION, FOURTH CYCLE CHEMOTHERAPY OF EC REGIMEN
     Route: 041
     Dates: start: 20250510, end: 20250510
  6. SODIUM CHLORIDE [Suspect]
     Active Substance: SODIUM CHLORIDE
     Indication: Invasive breast carcinoma
     Dosage: 100.0000 ML, QD, (WITH EPIRUBICIN HYDROCHLORIDE)
     Route: 041
     Dates: start: 20250510, end: 20250510
  7. SODIUM CHLORIDE [Suspect]
     Active Substance: SODIUM CHLORIDE
     Dosage: 100.0000 ML, QD, (WITH CYCLOPHOSPHAMIDE)
     Route: 041
     Dates: start: 20250510, end: 20250510
  8. DEXAMETHASONE SODIUM PHOSPHATE [Concomitant]
     Active Substance: DEXAMETHASONE SODIUM PHOSPHATE
     Indication: Gastrointestinal disorder prophylaxis
     Route: 042
     Dates: start: 20250510
  9. TROPISETRON HYDROCHLORIDE [Concomitant]
     Active Substance: TROPISETRON HYDROCHLORIDE
     Indication: Gastrointestinal disorder prophylaxis
     Route: 042
     Dates: start: 20250510
  10. TROPISETRON HYDROCHLORIDE [Concomitant]
     Active Substance: TROPISETRON HYDROCHLORIDE
     Indication: Prophylaxis of nausea and vomiting
     Route: 042
     Dates: start: 20250510
  11. TROPISETRON HYDROCHLORIDE [Concomitant]
     Active Substance: TROPISETRON HYDROCHLORIDE
     Indication: Antiemetic supportive care
  12. OMEPRAZOLE SODIUM [Concomitant]
     Active Substance: OMEPRAZOLE SODIUM
     Indication: Gastrointestinal disorder prophylaxis
     Route: 041
     Dates: start: 20250510
  13. OMEPRAZOLE SODIUM [Concomitant]
     Active Substance: OMEPRAZOLE SODIUM
     Indication: Antiemetic supportive care

REACTIONS (7)
  - Eructation [Recovering/Resolving]
  - Hiccups [Recovering/Resolving]
  - Sleep disorder [Recovering/Resolving]
  - Nausea [Recovering/Resolving]
  - Vomiting [Recovering/Resolving]
  - White blood cell count decreased [Recovering/Resolving]
  - Anaemia [Recovering/Resolving]

NARRATIVE: CASE EVENT DATE: 20250510
